FAERS Safety Report 7986365-2 (Version None)
Quarter: 2011Q4

REPORT INFORMATION
  Report Type: 
  Country: None (occurrence: None)
  Receive Date: 20111216
  Receipt Date: 20110105
  Transmission Date: 20120403
  Serious: No
  Sender: FDA-Public Use
  Company Number: US-GLAXOSMITHKLINE-A0903329A

PATIENT
  Age: 63 Year
  Sex: Female

DRUGS (9)
  1. METOLAZONE [Concomitant]
  2. XANAX [Concomitant]
  3. ISOSORBIDE DINITRATE [Concomitant]
  4. VYTORIN [Concomitant]
  5. FISH OIL [Concomitant]
  6. INSULIN [Concomitant]
  7. ASPIRIN [Concomitant]
  8. FUROSEMIDE [Concomitant]
  9. COREG CR [Suspect]
     Indication: MYOCARDIAL INFARCTION
     Dosage: 20MG PER DAY
     Route: 048
     Dates: start: 20040101

REACTIONS (1)
  - BLOOD PRESSURE DECREASED [None]
